FAERS Safety Report 14153447 (Version 5)
Quarter: 2018Q3

REPORT INFORMATION
  Report Type: Spontaneous
  Country: US (occurrence: US)
  Receive Date: 20171102
  Receipt Date: 20180904
  Transmission Date: 20181010
  Serious: Yes (Death, Other)
  Sender: FDA-Public Use
  Company Number: US-SA-2017SA156730

PATIENT
  Age: 77 Year
  Sex: Female

DRUGS (9)
  1. ALIROCUMAB PREFILLED PEN [Suspect]
     Active Substance: ALIROCUMAB
     Indication: BLOOD CHOLESTEROL INCREASED
     Dosage: 75 MG, QOW
     Route: 058
     Dates: start: 20170424, end: 20180815
  2. FISH OIL [Concomitant]
     Active Substance: FISH OIL
  3. FIORICET [Concomitant]
     Active Substance: ACETAMINOPHEN\BUTALBITAL\CAFFEINE
  4. ESOMEPRAZOLE [Concomitant]
     Active Substance: ESOMEPRAZOLE
  5. VITAMIN D3 [Concomitant]
     Active Substance: CHOLECALCIFEROL
  6. FLUCONAZOLE. [Concomitant]
     Active Substance: FLUCONAZOLE
  7. METHYLPREDNISOLONE. [Concomitant]
     Active Substance: METHYLPREDNISOLONE
  8. ARMODAFINIL. [Concomitant]
     Active Substance: ARMODAFINIL
  9. PRALUENT [Suspect]
     Active Substance: ALIROCUMAB
     Indication: BLOOD CHOLESTEROL INCREASED
     Dosage: 75 MG,QOW
     Route: 058
     Dates: start: 20170424, end: 20180815

REACTIONS (3)
  - Death [Fatal]
  - Unevaluable event [Unknown]
  - Rash pruritic [Unknown]

NARRATIVE: CASE EVENT DATE: 20170615
